FAERS Safety Report 19998913 (Version 1)
Quarter: 2021Q4

REPORT INFORMATION
  Report Type: Spontaneous
  Country: CN (occurrence: CN)
  Receive Date: 20211026
  Receipt Date: 20211026
  Transmission Date: 20220303
  Serious: Yes (Hospitalization)
  Sender: FDA-Public Use
  Company Number: CN-FRESENIUS KABI-FK202111540

PATIENT
  Age: 46 Year
  Sex: Male

DRUGS (6)
  1. AZITHROMYCIN ANHYDROUS [Suspect]
     Active Substance: AZITHROMYCIN ANHYDROUS
     Indication: Legionella infection
     Route: 065
     Dates: start: 202102
  2. MOXIFLOXACIN [Suspect]
     Active Substance: MOXIFLOXACIN
     Indication: Legionella infection
     Route: 065
     Dates: start: 202102
  3. PIPERACILLIN SODIUM\TAZOBACTAM SODIUM [Suspect]
     Active Substance: PIPERACILLIN SODIUM\TAZOBACTAM SODIUM
     Indication: Legionella infection
     Route: 065
     Dates: start: 202102
  4. IMIPENEM [Suspect]
     Active Substance: IMIPENEM
     Indication: Antibiotic therapy
     Route: 065
     Dates: start: 202102, end: 202102
  5. OSELTAMIVIR [Suspect]
     Active Substance: OSELTAMIVIR
     Indication: Antibiotic therapy
     Route: 065
     Dates: start: 202102, end: 202102
  6. MEROPENEM [Suspect]
     Active Substance: MEROPENEM
     Indication: Legionella infection
     Route: 065
     Dates: start: 202102

REACTIONS (2)
  - Bronchopulmonary aspergillosis [Recovering/Resolving]
  - Klebsiella infection [Recovering/Resolving]
